FAERS Safety Report 9486032 (Version 2)
Quarter: 2013Q4

REPORT INFORMATION
  Report Type: Report from Study
  Country: US (occurrence: US)
  Receive Date: 20130829
  Receipt Date: 20131011
  Transmission Date: 20140711
  Serious: Yes (Hospitalization)
  Sender: FDA-Public Use
  Company Number: US-JNJFOC-20130812621

PATIENT
  Sex: 0

DRUGS (3)
  1. SIMPONI [Suspect]
     Indication: RHEUMATOID ARTHRITIS
     Dosage: STOPPED FOR AN UNSPECIFIED EVENT
     Route: 058
  2. SIMPONI [Suspect]
     Indication: RHEUMATOID ARTHRITIS
     Dosage: RESTARTED
     Route: 058
  3. SIMPONI [Suspect]
     Indication: RHEUMATOID ARTHRITIS
     Dosage: STOPPED FOR SURGERY
     Route: 058

REACTIONS (5)
  - Knee arthroplasty [Unknown]
  - Nosocomial infection [Unknown]
  - Malaise [Unknown]
  - Adverse event [Unknown]
  - Drug ineffective [Unknown]
